FAERS Safety Report 12455842 (Version 2)
Quarter: 2016Q3

REPORT INFORMATION
  Report Type: Spontaneous
  Country: FI (occurrence: FI)
  Receive Date: 20160610
  Receipt Date: 20160718
  Transmission Date: 20161109
  Serious: Yes (Other)
  Sender: FDA-Public Use
  Company Number: FI-ROCHE-1770835

PATIENT
  Age: 25 Year
  Sex: Female

DRUGS (18)
  1. ROACTEMRA [Suspect]
     Active Substance: TOCILIZUMAB
     Dosage: DOSE: 8MG/KG
     Route: 042
     Dates: start: 20151120, end: 20151120
  2. PANACOD [Concomitant]
     Active Substance: ACETAMINOPHEN\CODEINE PHOSPHATE
     Dosage: DOSE: 500 /30 MG
     Route: 065
  3. OXIKLORIN [Concomitant]
     Active Substance: HYDROXYCHLOROQUINE SULFATE
     Indication: JUVENILE IDIOPATHIC ARTHRITIS
     Route: 048
  4. FOLIC ACID. [Concomitant]
     Active Substance: FOLIC ACID
     Dosage: 4-12 HOURS AFTER TREXAN
     Route: 065
  5. TOCILIZUMAB [Suspect]
     Active Substance: TOCILIZUMAB
     Indication: JUVENILE IDIOPATHIC ARTHRITIS
     Route: 065
  6. SALAZOPYRIN EN-TABS [Concomitant]
     Active Substance: SULFASALAZINE
     Route: 048
  7. ACLOVIR [Concomitant]
     Route: 065
  8. KALCIPOS-D [Concomitant]
     Active Substance: CALCIUM CARBONATE\CHOLECALCIFEROL
     Dosage: 500 MG/400 IU CALCIUM D-VITAMIN
     Route: 065
  9. ROACTEMRA [Suspect]
     Active Substance: TOCILIZUMAB
     Indication: JUVENILE IDIOPATHIC ARTHRITIS
     Dosage: DOSE: 8MG/KG
     Route: 042
     Dates: start: 20110916
  10. ROACTEMRA [Suspect]
     Active Substance: TOCILIZUMAB
     Dosage: DOSE: 8MG/KG
     Route: 042
     Dates: start: 20151029, end: 20151029
  11. MULTIVITA ASCORBIN [Concomitant]
     Route: 065
  12. MOTIFENE [Concomitant]
     Active Substance: DICLOFENAC SODIUM
     Dosage: MOTIFENE DUAL
     Route: 065
  13. TRIPTYL [Concomitant]
     Active Substance: AMITRIPTYLINE HYDROCHLORIDE
     Dosage: 25 MG IN THE MORNING AND 10 MG IN THE EVENING
     Route: 065
  14. GOLIMUMAB [Concomitant]
     Active Substance: GOLIMUMAB
     Indication: JUVENILE IDIOPATHIC ARTHRITIS
  15. ROACTEMRA [Suspect]
     Active Substance: TOCILIZUMAB
     Dosage: DOSE: 8MG/KG
     Route: 042
     Dates: start: 20150930, end: 20150930
  16. ROACTEMRA [Suspect]
     Active Substance: TOCILIZUMAB
     Dosage: DOSE: 8MG/KG
     Route: 042
     Dates: start: 20150903, end: 20150903
  17. SOMAC [Concomitant]
     Active Substance: PANTOPRAZOLE SODIUM
     Route: 065
  18. TREXAN (FINLAND) [Concomitant]
     Indication: JUVENILE IDIOPATHIC ARTHRITIS
     Route: 065

REACTIONS (2)
  - Hypoaesthesia [Recovered/Resolved]
  - Demyelination [Recovered/Resolved]

NARRATIVE: CASE EVENT DATE: 2015
